FAERS Safety Report 7008818-6 (Version None)
Quarter: 2010Q3

REPORT INFORMATION
  Report Type: 
  Country: None (occurrence: None)
  Receive Date: 20100922
  Receipt Date: 20100908
  Transmission Date: 20110219
  Serious: Yes (Hospitalization)
  Sender: FDA-Public Use
  Company Number: GB-MYLANLABS-2010S1016487

PATIENT
  Sex: Female

DRUGS (8)
  1. LEVODOPA [Suspect]
     Indication: PARKINSON'S DISEASE
     Route: 065
  2. LEVODOPA [Suspect]
     Dosage: SELF-ADMINISTERED
     Route: 065
  3. LEVODOPA [Suspect]
  4. CABERGOLINE [Suspect]
     Indication: PARKINSON'S DISEASE
     Dosage: UP TO 4 MG/DAY.
     Route: 065
  5. PERGOLIDE [Suspect]
     Indication: PARKINSON'S DISEASE
     Route: 065
  6. ROPINIROLE [Suspect]
     Indication: PARKINSON'S DISEASE
     Dosage: PRESCRIBED DOSAGE NOT STATED.
     Route: 065
  7. ROPINIROLE [Suspect]
     Dosage: SELF-ADMINISTERED UP TO 32 MG/DAY
     Route: 065
  8. ENTACAPONE [Concomitant]
     Indication: PARKINSON'S DISEASE
     Route: 065

REACTIONS (4)
  - DELUSION [None]
  - DOPAMINE DYSREGULATION SYNDROME [None]
  - HALLUCINATION [None]
  - STEREOTYPY [None]
